FAERS Safety Report 9938494 (Version 2)
Quarter: 2014Q1

REPORT INFORMATION
  Report Type: Spontaneous
  Country: US (occurrence: US)
  Receive Date: 20140303
  Receipt Date: 20140303
  Transmission Date: 20141002
  Serious: No
  Sender: FDA-Public Use
  Company Number: US-ABBVIE-12P-163-1009139-00

PATIENT
  Age: 39 Year
  Sex: Female

DRUGS (2)
  1. HUMIRA [Suspect]
     Indication: RHEUMATOID ARTHRITIS
  2. KENALOG [Suspect]
     Indication: PRODUCT USED FOR UNKNOWN INDICATION
     Route: 030

REACTIONS (8)
  - Osteoma cutis [Recovered/Resolved]
  - Soft tissue necrosis [Recovered/Resolved]
  - Subcutaneous abscess [Recovered/Resolved]
  - Dermatitis [Recovered/Resolved]
  - Actinomycosis [Recovered/Resolved]
  - Corynebacterium infection [Recovered/Resolved]
  - Staphylococcal infection [Recovered/Resolved]
  - Alpha haemolytic streptococcal infection [Recovered/Resolved]
